FAERS Safety Report 7812327-1 (Version None)
Quarter: 2011Q4

REPORT INFORMATION
  Report Type: 
  Country: None (occurrence: None)
  Receive Date: 20111013
  Receipt Date: 20111007
  Transmission Date: 20120403
  Serious: Yes (Death, Hospitalization)
  Sender: FDA-Public Use
  Company Number: US-GLAXOSMITHKLINE-A0784670A

PATIENT
  Sex: Male
  Weight: 90 kg

DRUGS (1)
  1. AVANDIA [Suspect]
     Indication: DIABETES MELLITUS
     Dosage: 4MG UNKNOWN
     Route: 048
     Dates: end: 20070118

REACTIONS (6)
  - MONOPLEGIA [None]
  - CEREBROVASCULAR ACCIDENT [None]
  - POOR PERIPHERAL CIRCULATION [None]
  - SWELLING [None]
  - ARTHRALGIA [None]
  - CARDIO-RESPIRATORY ARREST [None]
